FAERS Safety Report 19257464 (Version 1)
Quarter: 2021Q2

REPORT INFORMATION
  Report Type: Spontaneous
  Country: US (occurrence: US)
  Receive Date: 20210513
  Receipt Date: 20210513
  Transmission Date: 20210717
  Serious: No
  Sender: FDA-Public Use
  Company Number: None

PATIENT
  Age: 20 Year
  Sex: Female

DRUGS (1)
  1. OTEZLA [Suspect]
     Active Substance: APREMILAST
     Indication: PSORIATIC ARTHROPATHY
     Route: 048
     Dates: start: 202004

REACTIONS (6)
  - Erythema [None]
  - Skin burning sensation [None]
  - Headache [None]
  - Therapy interrupted [None]
  - Pruritus [None]
  - Drug ineffective [None]

NARRATIVE: CASE EVENT DATE: 202004
